FAERS Safety Report 6505335-4 (Version None)
Quarter: 2009Q4

REPORT INFORMATION
  Report Type: 
  Country: None (occurrence: None)
  Receive Date: 20091218
  Receipt Date: 20091209
  Transmission Date: 20100525
  Serious: Yes (Hospitalization)
  Sender: FDA-Public Use
  Company Number: GB-CELGENEUS-167-C5013-09112054

PATIENT
  Sex: Female

DRUGS (19)
  1. CC-5013 [Suspect]
     Indication: MULTIPLE MYELOMA
     Route: 048
     Dates: start: 20091110, end: 20091124
  2. CC-5013 [Suspect]
     Route: 048
     Dates: start: 20091207
  3. DEXAMETHASONE TAB [Suspect]
     Indication: MULTIPLE MYELOMA
     Route: 065
     Dates: start: 20091110, end: 20091124
  4. DEXAMETHASONE TAB [Suspect]
     Route: 065
     Dates: start: 20091207
  5. LANSOPRAZOLE [Concomitant]
     Indication: PROPHYLAXIS
     Route: 048
  6. METOCLOPRAMIDE [Concomitant]
     Indication: ANTIEMETIC SUPPORTIVE CARE
     Route: 048
  7. AMLODIPINE [Concomitant]
     Route: 048
     Dates: start: 20091001
  8. SIMVASTATIN [Concomitant]
     Indication: PROPHYLAXIS
     Route: 048
  9. AMOXICILLIN [Concomitant]
     Indication: PROPHYLAXIS
     Route: 048
  10. CO-CODAMOL [Concomitant]
     Indication: PAIN
     Dosage: 8/500 QDS
     Route: 048
  11. CALCIUM ERGOCALCIFEROL [Concomitant]
     Indication: VITAMIN D DEFICIENCY
     Route: 048
  12. ALBUTEROL [Concomitant]
     Route: 055
  13. ACYCLOVIR [Concomitant]
     Indication: ANTIVIRAL PROPHYLAXIS
     Route: 048
     Dates: start: 20091110
  14. ALLOPURINOL [Concomitant]
     Indication: PROPHYLAXIS
     Route: 048
     Dates: start: 20091110
  15. ASPIRIN [Concomitant]
     Indication: THROMBOSIS PROPHYLAXIS
     Route: 048
     Dates: start: 20091110
  16. CO-TRIMOXAZOLE [Concomitant]
     Indication: ANTIFUNGAL PROPHYLAXIS
     Route: 048
     Dates: start: 20091110
  17. CLENIL [Concomitant]
     Dosage: PUFFS
     Route: 055
  18. OCTENISAN [Concomitant]
     Indication: PROPHYLAXIS
     Route: 061
     Dates: start: 20091126, end: 20091126
  19. NASEPTIN [Concomitant]
     Indication: PROPHYLAXIS
     Route: 045
     Dates: start: 20091126, end: 20091126

REACTIONS (4)
  - BLOOD ALKALINE PHOSPHATASE INCREASED [None]
  - BLOOD CHLORIDE DECREASED [None]
  - BLOOD UREA DECREASED [None]
  - HYPONATRAEMIA [None]
